FAERS Safety Report 6135942-2 (Version None)
Quarter: 2009Q1

REPORT INFORMATION
  Report Type: 
  Country: None (occurrence: None)
  Receive Date: 20090329
  Receipt Date: 20080319
  Transmission Date: 20090719
  Serious: No
  Sender: FDA-Public Use
  Company Number: US-BAUSCH-2007BL004207

PATIENT
  Sex: Female

DRUGS (4)
  1. ALBUTEROL SULFATE [Suspect]
     Route: 049
  2. ALBUTEROL SULFATE [Suspect]
     Route: 049
  3. ALBUTEROL SULFATE [Suspect]
     Route: 049
  4. ALBUTEROL SULFATE [Suspect]
     Route: 049
     Dates: start: 20070101

REACTIONS (4)
  - BRONCHOSPASM [None]
  - DRUG EFFECT DECREASED [None]
  - DRUG INEFFECTIVE [None]
  - FEELING ABNORMAL [None]
